FAERS Safety Report 14917947 (Version 20)
Quarter: 2022Q3

REPORT INFORMATION
  Report Type: Other
  Country: GB (occurrence: GB)
  Receive Date: 20180521
  Receipt Date: 20220920
  Transmission Date: 20221027
  Serious: Yes (Hospitalization, Other)
  Sender: FDA-Public Use
  Company Number: GB-ROCHE-1745230

PATIENT
  Age: 68 Year
  Sex: Female

DRUGS (27)
  1. CAPECITABINE [Suspect]
     Active Substance: CAPECITABINE
     Indication: Breast cancer metastatic
     Dosage: TIME INTERVAL BETWEEN BEGINNING OF DRUG ADMINISTRATION AND END OF REACTION/EV
     Route: 048
     Dates: start: 20161122, end: 20161213
  2. CAPECITABINE [Suspect]
     Active Substance: CAPECITABINE
     Dosage: TIME INTERVAL BETWEEN BEGINNING OF DRUG ADMINISTRATION AND END OF REACTION/EV
     Route: 048
     Dates: start: 20161213, end: 20161216
  3. CAPECITABINE [Suspect]
     Active Substance: CAPECITABINE
     Route: 048
  4. CAPECITABINE [Suspect]
     Active Substance: CAPECITABINE
     Dosage: DRUG CUMULATIVE DOSAGE NUMBER: 10400 MG
     Route: 048
  5. CAPECITABINE [Suspect]
     Active Substance: CAPECITABINE
     Dosage: 1500 MG, 1300 MG FROM 13-DEC-2016 TO 16-DEC-2016
     Route: 048
     Dates: start: 20161122, end: 20161213
  6. CAPECITABINE [Suspect]
     Active Substance: CAPECITABINE
     Route: 048
     Dates: start: 20161213, end: 20161216
  7. TRASTUZUMAB [Suspect]
     Active Substance: TRASTUZUMAB
     Indication: Breast cancer metastatic
     Route: 058
     Dates: start: 20151124, end: 20151221
  8. TRASTUZUMAB [Suspect]
     Active Substance: TRASTUZUMAB
     Route: 058
     Dates: start: 20160531, end: 20161115
  9. TRASTUZUMAB [Suspect]
     Active Substance: TRASTUZUMAB
     Dosage: 600 MILLIGRAM, PER 3 WEEKS
     Route: 058
     Dates: start: 20160531, end: 20161115
  10. PACLITAXEL [Suspect]
     Active Substance: PACLITAXEL
     Indication: Breast cancer metastatic
     Route: 042
     Dates: start: 20151124, end: 20151221
  11. PACLITAXEL [Suspect]
     Active Substance: PACLITAXEL
     Route: 042
     Dates: start: 20161122
  12. PACLITAXEL [Suspect]
     Active Substance: PACLITAXEL
     Route: 065
     Dates: start: 20161124
  13. PACLITAXEL [Suspect]
     Active Substance: PACLITAXEL
     Dosage: 141 MILLIGRAM, QMO
     Route: 042
     Dates: start: 20151124, end: 20151221
  14. TAMOXIFEN [Suspect]
     Active Substance: TAMOXIFEN
     Indication: Breast cancer metastatic
     Dosage: 600 MG
     Route: 048
     Dates: start: 20160712, end: 20160802
  15. TAMOXIFEN [Suspect]
     Active Substance: TAMOXIFEN
     Route: 048
  16. TAMOXIFEN [Suspect]
     Active Substance: TAMOXIFEN
     Route: 048
  17. EXEMESTANE [Suspect]
     Active Substance: EXEMESTANE
     Indication: Breast cancer metastatic
     Route: 048
     Dates: start: 20160531, end: 20160610
  18. EXEMESTANE [Suspect]
     Active Substance: EXEMESTANE
     Dosage: LAST DOSE ON 12/JUL/2016
     Route: 065
     Dates: start: 20160712
  19. EXEMESTANE [Suspect]
     Active Substance: EXEMESTANE
     Route: 048
     Dates: start: 20160531, end: 20160610
  20. EXEMESTANE [Suspect]
     Active Substance: EXEMESTANE
     Route: 048
     Dates: end: 20160712
  21. CALCIUM CARBONATE\CHOLECALCIFEROL [Concomitant]
     Active Substance: CALCIUM CARBONATE\CHOLECALCIFEROL
     Indication: Product used for unknown indication
     Route: 048
     Dates: start: 20101221, end: 201511
  22. CALCIUM CARBONATE\CHOLECALCIFEROL [Concomitant]
     Active Substance: CALCIUM CARBONATE\CHOLECALCIFEROL
     Route: 048
     Dates: start: 20101221
  23. ENOXAPARIN [Concomitant]
     Active Substance: ENOXAPARIN
     Indication: Embolism venous
     Dosage: (PREVENTION OF VENOUS THROMBOEMBOLISM)
     Route: 058
     Dates: start: 20160104, end: 20160106
  24. ENOXAPARIN [Concomitant]
     Active Substance: ENOXAPARIN
     Indication: Thrombosis prophylaxis
     Route: 058
     Dates: start: 20160106
  25. CHOLECALCIFEROL [Concomitant]
     Active Substance: CHOLECALCIFEROL
     Indication: Product used for unknown indication
     Dosage: 245
     Route: 048
     Dates: start: 20101221
  26. OMEPRAZOLE [Concomitant]
     Active Substance: OMEPRAZOLE
     Indication: Product used for unknown indication
     Route: 048
     Dates: end: 20170530
  27. OMEPRAZOLE [Concomitant]
     Active Substance: OMEPRAZOLE
     Route: 048

REACTIONS (26)
  - Cerebral haemorrhage [Recovered/Resolved with Sequelae]
  - Vomiting [Recovered/Resolved]
  - Urinary tract infection [Unknown]
  - Dyspnoea [Recovered/Resolved]
  - Hypoalbuminaemia [Recovered/Resolved with Sequelae]
  - Ascites [Not Recovered/Not Resolved]
  - White blood cell count increased [Recovered/Resolved]
  - Hypokalaemia [Recovered/Resolved]
  - Blood bilirubin increased [Recovered/Resolved]
  - Diarrhoea [Recovered/Resolved]
  - Blood creatinine increased [Recovered/Resolved]
  - Nausea [Recovered/Resolved]
  - Agitation [Recovered/Resolved]
  - Pyrexia [Recovered/Resolved]
  - Blood alkaline phosphatase increased [Recovered/Resolved with Sequelae]
  - Fatigue [Recovered/Resolved]
  - Blood glucose increased [Recovered/Resolved]
  - Neutrophil count increased [Recovered/Resolved]
  - Constipation [Recovered/Resolved]
  - Blood phosphorus increased [Recovered/Resolved]
  - Hypernatraemia [Recovered/Resolved]
  - Blood urea increased [Unknown]
  - Protein total decreased [Recovered/Resolved]
  - Aspartate aminotransferase increased [Recovered/Resolved]
  - Pain [Recovered/Resolved]
  - Vomiting [Recovered/Resolved]

NARRATIVE: CASE EVENT DATE: 20151201
